FAERS Safety Report 16722887 (Version 1)
Quarter: 2019Q3

REPORT INFORMATION
  Report Type: Report from Study
  Country: CN (occurrence: CN)
  Receive Date: 20190821
  Receipt Date: 20190821
  Transmission Date: 20191005
  Serious: Yes (Hospitalization)
  Sender: FDA-Public Use
  Company Number: CN-ROCHE-1890533

PATIENT
  Age: 61 Year
  Sex: Female
  Weight: 67 kg

DRUGS (22)
  1. GLYCYRRHIZIC ACID AMMONIUM [Concomitant]
     Indication: PROPHYLAXIS
     Dosage: PREVENTIVE MEDICATION
     Route: 065
     Dates: start: 20161230, end: 20170104
  2. DOCETAXEL. [Suspect]
     Active Substance: DOCETAXEL
     Indication: HER-2 POSITIVE BREAST CANCER
     Dosage: MOST RECENT DOSE ON 20/JAN/2017
     Route: 042
     Dates: start: 20161118
  3. SODIUM CHLORIDE. [Concomitant]
     Active Substance: SODIUM CHLORIDE
     Dosage: PREVENTIVE MEDICATION
     Route: 065
     Dates: start: 20161230, end: 20161230
  4. THYMOSIN [Concomitant]
     Active Substance: THYMOSIN
     Dosage: ENHANCE IMMUNITY
     Route: 065
     Dates: start: 20170130, end: 20170208
  5. GLUCOSE [Concomitant]
     Active Substance: DEXTROSE
     Dosage: FLUID INFUSION
     Route: 065
     Dates: start: 20170128, end: 20170128
  6. PERTUZUMAB. [Suspect]
     Active Substance: PERTUZUMAB
     Indication: HER-2 POSITIVE BREAST CANCER
     Dosage: LOADING DOSE IN CYCLE 1, DAY 1 ONLY
     Route: 042
     Dates: start: 20161118, end: 20161118
  7. TRASTUZUMAB. [Suspect]
     Active Substance: TRASTUZUMAB
     Dosage: MAINTENANCE DOSE (6 MG/KG)?MOST RECENT DOSE ON 20/JAN/2017
     Route: 042
     Dates: start: 20161209
  8. ACETYLCYSTEINE. [Concomitant]
     Active Substance: ACETYLCYSTEINE
     Dosage: REDUCE PHLEGM
     Route: 065
     Dates: start: 20170131, end: 20170208
  9. GLYCYRRHIZIC ACID AMMONIUM [Concomitant]
     Dosage: TO PROTECT LIVER
     Route: 065
     Dates: start: 20170129, end: 20170129
  10. BUDESONIDE. [Concomitant]
     Active Substance: BUDESONIDE
     Indication: ASTHMA
     Route: 065
     Dates: start: 20170203, end: 20170208
  11. PERTUZUMAB. [Suspect]
     Active Substance: PERTUZUMAB
     Dosage: MAINTENANCE DOSE?MOST RECENT DOSE ON 20/JAN/2017?420 MG/14 ML
     Route: 042
     Dates: start: 20161209
  12. CIMETIDINE [Concomitant]
     Active Substance: CIMETIDINE
     Indication: PROPHYLAXIS
     Route: 065
     Dates: start: 20161230, end: 20161230
  13. GLYCYRRHIZIC ACID AMMONIUM [Concomitant]
     Route: 065
     Dates: start: 20170120, end: 20170124
  14. TROPISETRON HYDROCHLORIDE [Concomitant]
     Active Substance: TROPISETRON HYDROCHLORIDE
     Indication: PROPHYLAXIS
     Route: 065
     Dates: start: 20161230, end: 20161230
  15. CEFOTIAM [Concomitant]
     Active Substance: CEFOTIAM
     Dosage: ANTI-INFLAMMATORY
     Route: 065
     Dates: start: 20170204, end: 20170208
  16. AMBROXOL [Concomitant]
     Active Substance: AMBROXOL
     Dosage: REDUCE PHLEGM
     Route: 065
     Dates: start: 20170130, end: 20170208
  17. TRASTUZUMAB. [Suspect]
     Active Substance: TRASTUZUMAB
     Indication: HER-2 POSITIVE BREAST CANCER
     Dosage: LOADING DOSE
     Route: 042
     Dates: start: 20161118, end: 20161118
  18. CIMETIDINE [Concomitant]
     Active Substance: CIMETIDINE
     Route: 065
     Dates: start: 20170120, end: 20170120
  19. TROPISETRON HYDROCHLORIDE [Concomitant]
     Active Substance: TROPISETRON HYDROCHLORIDE
     Route: 065
     Dates: start: 20170120, end: 20170120
  20. SODIUM CHLORIDE. [Concomitant]
     Active Substance: SODIUM CHLORIDE
     Dosage: AS ANTI-INFLAMMATORY,FLUID INFUSION
     Route: 065
     Dates: start: 20170128, end: 20170128
  21. SODIUM CHLORIDE. [Concomitant]
     Active Substance: SODIUM CHLORIDE
     Route: 065
     Dates: start: 20170120, end: 20170120
  22. KANGLAITE [Concomitant]
     Indication: PRODUCT USED FOR UNKNOWN INDICATION
     Route: 065
     Dates: start: 20170203, end: 20170208

REACTIONS (1)
  - Pneumonia [Recovered/Resolved]

NARRATIVE: CASE EVENT DATE: 20170126
